FAERS Safety Report 22270734 (Version 1)
Quarter: 2023Q2

REPORT INFORMATION
  Report Type: Spontaneous
  Country: US (occurrence: US)
  Receive Date: 20230501
  Receipt Date: 20230501
  Transmission Date: 20230722
  Serious: Yes (Hospitalization)
  Sender: FDA-Public Use
  Company Number: US-INCYTE CORPORATION-2023IN004414

PATIENT

DRUGS (4)
  1. JAKAFI [Suspect]
     Active Substance: RUXOLITINIB
     Indication: Essential hypertension
     Dosage: 5 MILLIGRAM, BID
     Route: 048
  2. JAKAFI [Suspect]
     Active Substance: RUXOLITINIB
     Indication: Arthritis
  3. JAKAFI [Suspect]
     Active Substance: RUXOLITINIB
     Indication: Hyperlipidaemia
  4. JAKAFI [Suspect]
     Active Substance: RUXOLITINIB
     Indication: Thyroid disorder

REACTIONS (2)
  - Ill-defined disorder [Unknown]
  - Off label use [Unknown]
